FAERS Safety Report 4774010-9 (Version None)
Quarter: 2005Q3

REPORT INFORMATION
  Report Type: 
  Country: None (occurrence: None)
  Receive Date: 20050920
  Receipt Date: 20050914
  Transmission Date: 20060218
  Serious: Yes (Hospitalization, Other)
  Sender: FDA-Public Use
  Company Number: 200518154GDDC

PATIENT
  Age: 36 Year
  Sex: Female

DRUGS (2)
  1. CLOMIPHENE CITRATE [Suspect]
     Indication: INFERTILITY
     Route: 048
     Dates: start: 20050617, end: 20050621
  2. CHORIONIC GONADOTROPIN [Suspect]
     Indication: INFERTILITY
     Dosage: DOSE UNIT: UNITS
     Route: 030
     Dates: start: 20050626

REACTIONS (1)
  - MYELITIS TRANSVERSE [None]
